FAERS Safety Report 7342804-1 (Version None)
Quarter: 2011Q1

REPORT INFORMATION
  Report Type: 
  Country: None (occurrence: None)
  Receive Date: 20110310
  Receipt Date: 20110223
  Transmission Date: 20110831
  Serious: Yes (Hospitalization, Other)
  Sender: FDA-Public Use
  Company Number: US-BAYER-201011829NA

PATIENT
  Sex: Female
  Weight: 75 kg

DRUGS (5)
  1. WELLBUTRIN XL [Concomitant]
  2. PROZAC [Concomitant]
  3. YAZ [Suspect]
     Indication: PREMENSTRUAL SYNDROME
     Dates: start: 20071101, end: 20080110
  4. CYMBALTA [Concomitant]
  5. NASACORT AQ [Concomitant]

REACTIONS (4)
  - PAIN IN EXTREMITY [None]
  - PULMONARY EMBOLISM [None]
  - DYSPNOEA [None]
  - OEDEMA PERIPHERAL [None]
